FAERS Safety Report 25389575 (Version 1)
Quarter: 2025Q2

REPORT INFORMATION
  Report Type: Spontaneous
  Country: US (occurrence: US)
  Receive Date: 20250603
  Receipt Date: 20250603
  Transmission Date: 20250717
  Serious: Yes (Other)
  Sender: DOMPE FARMACEUTICI
  Company Number: US-FARMAPROD-202505-1757

PATIENT
  Sex: Female
  Weight: 74.84 kg

DRUGS (7)
  1. OXERVATE [Suspect]
     Active Substance: CENEGERMIN-BKBJ
     Indication: Corneal erosion
     Route: 047
     Dates: start: 20250429
  2. LOTEMAX [Concomitant]
     Active Substance: LOTEPREDNOL ETABONATE
  3. MURO-128 [Concomitant]
  4. MURO-128 [Concomitant]
  5. AZOPT [Concomitant]
     Active Substance: BRINZOLAMIDE
  6. COMBIGAN [Concomitant]
     Active Substance: BRIMONIDINE TARTRATE\TIMOLOL MALEATE
  7. VYZULTA [Concomitant]
     Active Substance: LATANOPROSTENE BUNOD

REACTIONS (3)
  - Hip fracture [Unknown]
  - Fall [Unknown]
  - Off label use [Unknown]
